FAERS Safety Report 7641144-0 (Version None)
Quarter: 2011Q3

REPORT INFORMATION
  Report Type: 
  Country: None (occurrence: None)
  Receive Date: 20110728
  Receipt Date: 20110713
  Transmission Date: 20111222
  Serious: Yes (Hospitalization)
  Sender: FDA-Public Use
  Company Number: PHHY2011US63362

PATIENT

DRUGS (2)
  1. EXFORGE [Suspect]
     Indication: BLOOD PRESSURE INADEQUATELY CONTROLLED
  2. TEKTURNA [Suspect]
     Indication: BLOOD PRESSURE INADEQUATELY CONTROLLED

REACTIONS (1)
  - HYPONATRAEMIA [None]
